FAERS Safety Report 16260106 (Version 1)
Quarter: 2019Q2

REPORT INFORMATION
  Report Type: Spontaneous
  Country: US (occurrence: US)
  Receive Date: 20190501
  Receipt Date: 20190501
  Transmission Date: 20190711
  Serious: No
  Sender: FDA-Public Use
  Company Number: US-PFIZER INC-2019175511

PATIENT
  Age: 57 Year
  Sex: Female
  Weight: 89.36 kg

DRUGS (3)
  1. PREMARIN [Suspect]
     Active Substance: ESTROGENS, CONJUGATED
     Dosage: 0.625 MG, ONCE A DAY
     Route: 048
     Dates: start: 2015, end: 2019
  2. PREMARIN [Suspect]
     Active Substance: ESTROGENS, CONJUGATED
     Dosage: HALF A TABLET
     Route: 048
     Dates: end: 2019
  3. PREMARIN [Suspect]
     Active Substance: ESTROGENS, CONJUGATED
     Dosage: QUARTER OF A TABLET
     Route: 048
     Dates: end: 2019

REACTIONS (3)
  - Breast tenderness [Recovered/Resolved]
  - Intentional product misuse [Unknown]
  - Hot flush [Recovering/Resolving]
